FAERS Safety Report 22259944 (Version 1)
Quarter: 2023Q2

REPORT INFORMATION
  Report Type: Report from Study
  Country: US (occurrence: US)
  Receive Date: 20230427
  Receipt Date: 20230427
  Transmission Date: 20230722
  Serious: Yes (Hospitalization)
  Sender: FDA-Public Use
  Company Number: US-PFIZER INC-202101415806

PATIENT
  Age: 50 Year
  Sex: Female
  Weight: 98.7 kg

DRUGS (5)
  1. ENCORAFENIB [Suspect]
     Active Substance: ENCORAFENIB
     Indication: Colorectal cancer metastatic
     Dosage: 300 MG, 1X/DAY
     Route: 048
     Dates: start: 20210609, end: 20211020
  2. CETUXIMAB [Suspect]
     Active Substance: CETUXIMAB
     Indication: Colorectal cancer metastatic
     Dosage: 1000 MG, EVERY 2 WEEKS
     Route: 042
     Dates: start: 20210609
  3. FLUOROURACIL [Suspect]
     Active Substance: FLUOROURACIL
     Indication: Colorectal cancer metastatic
     Dosage: DOSE FOR IV BOLUS: 600 MG, DOSE FOR IV INFUSION: 3800 MG, EVERY 2 WEEKS
     Route: 042
     Dates: start: 20210609
  4. OXALIPLATIN [Suspect]
     Active Substance: OXALIPLATIN
     Indication: Colorectal cancer metastatic
     Dosage: 130 MG, EVERY 2 WEEKS
     Route: 042
     Dates: start: 20210609, end: 20210902
  5. LEUCOVORIN [Suspect]
     Active Substance: LEUCOVORIN
     Indication: Colorectal cancer metastatic
     Dosage: 650 MG, EVERY 2 WEEKS
     Route: 042
     Dates: start: 20210609

REACTIONS (3)
  - Second primary malignancy [Recovered/Resolved]
  - Malignant melanoma [Recovered/Resolved]
  - Pyrexia [Recovered/Resolved]

NARRATIVE: CASE EVENT DATE: 20211020
